FAERS Safety Report 9538804 (Version 1)
Quarter: 2013Q2

REPORT INFORMATION
  Report Type: Spontaneous
  Country: US (occurrence: None)
  Receive Date: 20130517
  Receipt Date: 20130517
  Transmission Date: 20140414
  Serious: Yes (Other)
  Sender: FDA-Public Use
  Company Number: 1000043529

PATIENT
  Age: 54 Year
  Sex: Male

DRUGS (5)
  1. VIIBRYD [Suspect]
     Indication: DEPRESSION
     Dosage: 1 IN 1 D
     Route: 048
     Dates: start: 20130205, end: 20130211
  2. VIIBRYD [Suspect]
     Indication: ANXIETY
     Dosage: 1 IN 1 D
     Route: 048
     Dates: start: 20130205, end: 20130211
  3. VIIBRYD [Suspect]
     Indication: DEPRESSION
     Dosage: 1 IN 1 D
     Route: 048
     Dates: start: 20130219, end: 20130221
  4. VIIBRYD [Suspect]
     Indication: ANXIETY
     Dosage: 1 IN 1 D
     Route: 048
     Dates: start: 20130219, end: 20130221
  5. ZOLPIDEM (ZOLPIDEM) [Concomitant]

REACTIONS (6)
  - Diarrhoea [None]
  - Nervousness [None]
  - Feeling jittery [None]
  - Nausea [None]
  - Migraine [None]
  - Anxiety [None]
